FAERS Safety Report 5729308-4 (Version None)
Quarter: 2008Q2

REPORT INFORMATION
  Report Type: 
  Country: None (occurrence: None)
  Receive Date: 20080506
  Receipt Date: 20080429
  Transmission Date: 20081010
  Serious: No
  Sender: FDA-Public Use
  Company Number: US-BAXTER-2008BH004566

PATIENT

DRUGS (2)
  1. HEPARIN SODIUM [Suspect]
     Indication: DRUG USE FOR UNKNOWN INDICATION
     Route: 041
     Dates: start: 20080429, end: 20080429
  2. HEPARIN SODIUM [Suspect]
     Route: 041

REACTIONS (1)
  - INCORRECT DRUG ADMINISTRATION RATE [None]
